FAERS Safety Report 24539252 (Version 1)
Quarter: 2024Q4

REPORT INFORMATION
  Report Type: Spontaneous
  Country: IL (occurrence: IL)
  Receive Date: 20241023
  Receipt Date: 20241023
  Transmission Date: 20250115
  Serious: Yes (Hospitalization, Other)
  Sender: RANBAXY
  Company Number: IL-SUN PHARMACEUTICAL INDUSTRIES LTD-2024R1-473448

PATIENT
  Age: 64 Year
  Sex: Male

DRUGS (2)
  1. ASPIRIN [Suspect]
     Active Substance: ASPIRIN
     Indication: Coronary artery disease
     Route: 065
  2. PRASUGREL [Suspect]
     Active Substance: PRASUGREL
     Indication: Coronary artery disease
     Route: 065

REACTIONS (5)
  - Coeliac disease [Unknown]
  - Pulmonary alveolar haemorrhage [Unknown]
  - Emphysema [Unknown]
  - Coagulation factor [Unknown]
  - Malabsorption [Unknown]
